FAERS Safety Report 16877589 (Version 1)
Quarter: 2019Q4

REPORT INFORMATION
  Report Type: Spontaneous
  Country: CN (occurrence: CN)
  Receive Date: 20191002
  Receipt Date: 20191002
  Transmission Date: 20200122
  Serious: Yes (Other)
  Sender: FDA-Public Use
  Company Number: PHHY2019CN227006

PATIENT
  Age: 27 Year
  Sex: Male

DRUGS (1)
  1. OXCARBAZEPINE. [Suspect]
     Active Substance: OXCARBAZEPINE
     Indication: EPILEPSY
     Dosage: 1200 MG, QD
     Route: 048

REACTIONS (6)
  - Somnolence [Recovering/Resolving]
  - Drug ineffective [Unknown]
  - Hippocampal sclerosis [Unknown]
  - Tongue erythema [Unknown]
  - Faeces hard [Unknown]
  - Irritability [Unknown]
